FAERS Safety Report 7091510-X (Version None)
Quarter: 2010Q4

REPORT INFORMATION
  Report Type: 
  Country: None (occurrence: None)
  Receive Date: 20101109
  Receipt Date: 20101104
  Transmission Date: 20110411
  Serious: Yes (Other)
  Sender: FDA-Public Use
  Company Number: DE-PFIZER INC-2010141108

PATIENT
  Age: 48 Year
  Sex: Male

DRUGS (1)
  1. SUTENT [Suspect]
     Dosage: UNK
     Dates: start: 20070301

REACTIONS (4)
  - FATIGUE [None]
  - LOSS OF LIBIDO [None]
  - SLEEP DISORDER [None]
  - SPERM COUNT DECREASED [None]
